FAERS Safety Report 8160732-9 (Version None)
Quarter: 2012Q1

REPORT INFORMATION
  Report Type: 
  Country: None (occurrence: None)
  Receive Date: 20120223
  Receipt Date: 20120214
  Transmission Date: 20120608
  Serious: Yes (Other)
  Sender: FDA-Public Use
  Company Number: PHEH2011US011486

PATIENT
  Sex: Male
  Weight: 79 kg

DRUGS (4)
  1. NEXIUM [Concomitant]
     Indication: RENAL CELL CARCINOMA
     Dosage: 40 MG, UNK
     Route: 048
     Dates: start: 20110718
  2. AFINITOR [Suspect]
     Indication: RENAL CELL CARCINOMA
     Dosage: 10 MG, DAILY
     Route: 048
     Dates: start: 20111110, end: 20111208
  3. TRAMADOL HCL [Concomitant]
     Indication: BONE PAIN
     Dosage: 50 MG, TID
     Route: 048
     Dates: start: 20110718
  4. AFINITOR [Suspect]
     Dosage: 5 MG, DAILY
     Route: 048
     Dates: start: 20111208

REACTIONS (11)
  - STOMATITIS [None]
  - ORAL PAIN [None]
  - DYSPNOEA [None]
  - PAIN [None]
  - LIP SWELLING [None]
  - BONE PAIN [None]
  - BACK PAIN [None]
  - COUGH [None]
  - CHEST PAIN [None]
  - MOUTH ULCERATION [None]
  - SWOLLEN TONGUE [None]
